FAERS Safety Report 9607837 (Version 2)
Quarter: 2013Q4

REPORT INFORMATION
  Report Type: Report from Study
  Country: US (occurrence: US)
  Receive Date: 20131009
  Receipt Date: 20131014
  Transmission Date: 20140711
  Serious: Yes (Hospitalization, Other)
  Sender: FDA-Public Use
  Company Number: US-PURDUE-USA-2013-0107074

PATIENT
  Age: 53 Year
  Sex: Female

DRUGS (2)
  1. OXYCONTIN (NDA 22-272) [Suspect]
     Indication: PAIN
     Dosage: 80 MG 2 TABS IN QAM AND 1 TAB IN QHS
     Route: 048
  2. OXYCONTIN (NDA 22-272) [Suspect]
     Dosage: 20 MG 2 TABS AT A.M AND 1 TAB AT H.S
     Route: 048
     Dates: start: 2011

REACTIONS (7)
  - Cardiac disorder [Unknown]
  - Stent placement [Unknown]
  - Gangrene [Unknown]
  - Vascular graft [Recovered/Resolved]
  - Toe amputation [Unknown]
  - Convulsion [Recovered/Resolved]
  - Amnesia [Not Recovered/Not Resolved]
